FAERS Safety Report 5221063-X (Version None)
Quarter: 2007Q1

REPORT INFORMATION
  Report Type: 
  Country: None (occurrence: None)
  Receive Date: 20070126
  Receipt Date: 20070122
  Transmission Date: 20070707
  Serious: Yes (Death)
  Sender: FDA-Public Use
  Company Number: US-BRACCO-BDI-008859

PATIENT
  Sex: Male

DRUGS (5)
  1. ISOVUE-128 [Suspect]
     Route: 042
     Dates: start: 20061114, end: 20061114
  2. ISOVUE-128 [Suspect]
     Indication: ABDOMINAL PAIN
     Route: 042
     Dates: start: 20061114, end: 20061114
  3. COUMADIN [Concomitant]
     Route: 050
     Dates: end: 20061114
  4. LIPITOR                            /01326101/ [Concomitant]
     Route: 050
     Dates: end: 20061114
  5. METAPREL [Concomitant]
     Route: 050
     Dates: end: 20061114

REACTIONS (1)
  - AORTIC RUPTURE [None]
